FAERS Safety Report 9292656 (Version 1)
Quarter: 2013Q2

REPORT INFORMATION
  Report Type: Spontaneous
  Country: DE (occurrence: DE)
  Receive Date: 20130516
  Receipt Date: 20130516
  Transmission Date: 20140414
  Serious: Yes (Death, Hospitalization)
  Sender: FDA-Public Use
  Company Number: DE-ELI_LILLY_AND_COMPANY-DE201305004405

PATIENT
  Age: 69 Year
  Sex: Male

DRUGS (5)
  1. ALIMTA [Suspect]
     Indication: NON-SMALL CELL LUNG CANCER
     Dosage: 500 MG/M2, UNK
     Route: 042
     Dates: start: 201106, end: 20110810
  2. CARBOPLATIN [Concomitant]
     Indication: NON-SMALL CELL LUNG CANCER
  3. FOLIC ACID [Concomitant]
  4. VITAMIN B12 [Concomitant]
  5. DEXAMETHASONE [Concomitant]

REACTIONS (7)
  - Pulmonary embolism [Fatal]
  - General physical health deterioration [Not Recovered/Not Resolved]
  - Acute respiratory failure [Not Recovered/Not Resolved]
  - Pleural effusion [Not Recovered/Not Resolved]
  - Cardiac failure [Not Recovered/Not Resolved]
  - Haematotoxicity [Unknown]
  - Off label use [Unknown]
